FAERS Safety Report 19823479 (Version 1)
Quarter: 2021Q3

REPORT INFORMATION
  Report Type: Spontaneous
  Country: DE (occurrence: CN)
  Receive Date: 20210913
  Receipt Date: 20210913
  Transmission Date: 20211014
  Serious: Yes (Hospitalization)
  Sender: FDA-Public Use
  Company Number: CN-ELI_LILLY_AND_COMPANY-CN202109003864

PATIENT
  Age: 52 Year
  Sex: Male

DRUGS (3)
  1. VEMURAFENIB. [Suspect]
     Active Substance: VEMURAFENIB
     Indication: COLON CANCER
     Dosage: 960 MG, UNKNOWN (D1?14 Q3W )
     Route: 048
     Dates: start: 20210509, end: 20210522
  2. ERBITUX [Suspect]
     Active Substance: CETUXIMAB
     Dosage: 250 MG/M2, UNKNOWN
     Route: 041
     Dates: start: 20210509, end: 20210522
  3. ERBITUX [Suspect]
     Active Substance: CETUXIMAB
     Indication: COLON CANCER
     Dosage: 450 MG/M2, UNKNOWN
     Route: 041
     Dates: start: 20210509

REACTIONS (1)
  - Hepatic function abnormal [Recovering/Resolving]

NARRATIVE: CASE EVENT DATE: 20210531
